FAERS Safety Report 24903770 (Version 1)
Quarter: 2025Q1

REPORT INFORMATION
  Report Type: Spontaneous
  Country: AU (occurrence: AU)
  Receive Date: 20250130
  Receipt Date: 20250130
  Transmission Date: 20250408
  Serious: Yes (Death, Hospitalization, Other)
  Sender: ALEXION PHARMACEUTICALS
  Company Number: AU-SA-2025SA023307

PATIENT

DRUGS (1)
  1. NIRSEVIMAB [Suspect]
     Active Substance: NIRSEVIMAB

REACTIONS (4)
  - Bradycardia [Fatal]
  - Demyelination [Fatal]
  - Seizure [Fatal]
  - Hypoxic-ischaemic encephalopathy [Fatal]
